FAERS Safety Report 24162444 (Version 1)
Quarter: 2024Q3

REPORT INFORMATION
  Report Type: Report from Study
  Country: US (occurrence: US)
  Receive Date: 20240801
  Receipt Date: 20240801
  Transmission Date: 20241016
  Serious: Yes (Other)
  Sender: GILEAD
  Company Number: US-GILEAD-2024-0682421

PATIENT
  Sex: Female

DRUGS (9)
  1. AZTREONAM LYSINE [Suspect]
     Active Substance: AZTREONAM LYSINE
     Indication: Cystic fibrosis
     Dosage: 75MG, INH, TID, QOM
     Route: 055
  2. VITAMINS NOS [Concomitant]
     Active Substance: VITAMINS
  3. METAMUCIL [Concomitant]
     Active Substance: PLANTAGO SEED
  4. ALBUTEROL [Concomitant]
     Active Substance: ALBUTEROL
  5. SODIUM CHLORIDE [Concomitant]
     Active Substance: SODIUM CHLORIDE
  6. MUCOMYST [Concomitant]
     Active Substance: ACETYLCYSTEINE
  7. ZITHROMAX [Concomitant]
     Active Substance: AZITHROMYCIN DIHYDRATE
  8. ACETYLCYSTEINE [Concomitant]
     Active Substance: ACETYLCYSTEINE
  9. VORICONAZOLE [Concomitant]
     Active Substance: VORICONAZOLE

REACTIONS (1)
  - Pneumonia bacterial [Unknown]
